FAERS Safety Report 5615719-4 (Version None)
Quarter: 2008Q1

REPORT INFORMATION
  Report Type: 
  Country: None (occurrence: None)
  Receive Date: 20080206
  Receipt Date: 20071127
  Transmission Date: 20080703
  Serious: Yes (Hospitalization)
  Sender: FDA-Public Use
  Company Number: NO-JNJFOC-20080200738

PATIENT
  Sex: Male

DRUGS (8)
  1. RISPERDAL [Suspect]
     Route: 048
  2. RISPERDAL [Suspect]
     Indication: SCHIZOPHRENIA
     Route: 048
  3. RISPERDAL CONSTA [Suspect]
     Route: 030
  4. RISPERDAL CONSTA [Suspect]
     Route: 030
  5. RISPERDAL CONSTA [Suspect]
     Indication: SCHIZOPHRENIA
     Route: 030
  6. ABILIFY [Concomitant]
  7. ZOLOFT [Concomitant]
     Indication: DEPRESSION
  8. CLONAZEPAM [Concomitant]

REACTIONS (16)
  - ANXIETY [None]
  - DEPRESSION [None]
  - DIARRHOEA [None]
  - DRY MOUTH [None]
  - DYSPNOEA [None]
  - FATIGUE [None]
  - FEELING ABNORMAL [None]
  - HALLUCINATION [None]
  - HEADACHE [None]
  - INSOMNIA [None]
  - MUSCULOSKELETAL STIFFNESS [None]
  - NAUSEA [None]
  - PARANOIA [None]
  - PSYCHOTIC DISORDER [None]
  - THINKING ABNORMAL [None]
  - TREATMENT NONCOMPLIANCE [None]
